FAERS Safety Report 11617347 (Version 2)
Quarter: 2016Q3

REPORT INFORMATION
  Report Type: Report from Study
  Country: CN (occurrence: CN)
  Receive Date: 20151009
  Receipt Date: 20160923
  Transmission Date: 20161109
  Serious: Yes (Hospitalization)
  Sender: FDA-Public Use
  Company Number: CN-BAYER-2015-435785

PATIENT
  Age: 42 Year
  Sex: Female
  Weight: 49 kg

DRUGS (1)
  1. ACETYLSALICYLIC ACID({=100 MG) [Suspect]
     Active Substance: ASPIRIN
     Indication: NEOPLASM PROPHYLAXIS
     Dosage: 200 MG, QD
     Route: 048
     Dates: start: 20150426, end: 20150503

REACTIONS (2)
  - Urinary retention [Recovered/Resolved]
  - Demyelination [Recovering/Resolving]

NARRATIVE: CASE EVENT DATE: 20150427
